FAERS Safety Report 14558923 (Version 2)
Quarter: 2018Q1

REPORT INFORMATION
  Report Type: Report from Study
  Country: IL (occurrence: IL)
  Receive Date: 20180221
  Receipt Date: 20180226
  Transmission Date: 20180509
  Serious: Yes (Hospitalization)
  Sender: FDA-Public Use
  Company Number: IL-ASTRAZENECA-2018SE16983

PATIENT
  Age: 63 Year
  Sex: Male

DRUGS (1)
  1. DURVALUMAB. [Suspect]
     Active Substance: DURVALUMAB
     Route: 041

REACTIONS (2)
  - Influenza [Unknown]
  - Pneumonia [Unknown]
